FAERS Safety Report 23816341 (Version 1)
Quarter: 2024Q2

REPORT INFORMATION
  Report Type: Spontaneous
  Country: ZA (occurrence: None)
  Receive Date: 20240503
  Receipt Date: 20240503
  Transmission Date: 20240716
  Serious: Yes (Hospitalization)
  Sender: FDA-Public Use
  Company Number: 2024A101886

PATIENT
  Age: 40 Year
  Sex: Female

DRUGS (10)
  1. DAPAGLIFLOZIN [Suspect]
     Active Substance: DAPAGLIFLOZIN
     Indication: Diabetes mellitus
     Dosage: 5.0MG UNKNOWN
     Route: 048
  2. ALLECET [Concomitant]
     Indication: Hypersensitivity
     Route: 048
  3. NIFEDIPINE [Concomitant]
     Active Substance: NIFEDIPINE
     Indication: Hypertension
     Route: 048
  4. SIMVASTATIN [Concomitant]
     Active Substance: SIMVASTATIN
     Indication: Blood cholesterol
     Route: 048
  5. CARDURA XL [Concomitant]
     Active Substance: DOXAZOSIN MESYLATE
     Route: 048
  6. PREXUM 5 PLUS [Concomitant]
     Indication: Hypertension
     Route: 048
  7. SULFAMETHOXAZOLE\TRIMETHOPRIM [Concomitant]
     Active Substance: SULFAMETHOXAZOLE\TRIMETHOPRIM
     Indication: Acne
     Route: 048
  8. DAMICAVA [Concomitant]
     Indication: Antiviral treatment
     Route: 048
  9. STOPAYNE [Concomitant]
     Indication: Pain
     Route: 048
  10. SYNALEVE [Concomitant]
     Indication: Pain
     Route: 048

REACTIONS (2)
  - Blood iron decreased [Unknown]
  - Dizziness [Unknown]
